FAERS Safety Report 18043949 (Version 1)
Quarter: 2020Q3

REPORT INFORMATION
  Report Type: Spontaneous
  Country: US (occurrence: US)
  Receive Date: 20200718
  Receipt Date: 20200718
  Transmission Date: 20201103
  Serious: Yes (Hospitalization)
  Sender: FDA-Public Use
  Company Number: None

PATIENT
  Age: 74 Year
  Sex: Male
  Weight: 76.3 kg

DRUGS (2)
  1. CASODEX [Suspect]
     Active Substance: BICALUTAMIDE
     Dates: end: 20181219
  2. LEUPROLIDE ACETATE. [Suspect]
     Active Substance: LEUPROLIDE ACETATE
     Dates: end: 20190528

REACTIONS (6)
  - Poor personal hygiene [None]
  - Cognitive disorder [None]
  - Mood altered [None]
  - Decreased appetite [None]
  - Skin ulcer [None]
  - Cellulitis of male external genital organ [None]

NARRATIVE: CASE EVENT DATE: 20200702
